FAERS Safety Report 14313634 (Version 8)
Quarter: 2018Q2

REPORT INFORMATION
  Report Type: Spontaneous
  Country: DE (occurrence: DE)
  Receive Date: 20171221
  Receipt Date: 20180626
  Transmission Date: 20180711
  Serious: Yes (Hospitalization, Other)
  Sender: FDA-Public Use
  Company Number: DE-JAZZ-2017-DE-016763

PATIENT
  Age: 34 Month
  Sex: Male
  Weight: 12.2 kg

DRUGS (65)
  1. ASPARAGINASE [Suspect]
     Active Substance: ASPARAGINASE
     Indication: PHILADELPHIA CHROMOSOME POSITIVE
     Dosage: 13000 IU, QD
     Route: 042
     Dates: start: 20160209, end: 20160209
  2. ASPARAGINASE [Suspect]
     Active Substance: ASPARAGINASE
     Dosage: 1300 IU, QD
     Route: 042
     Dates: start: 20160303
  3. ASPARAGINASE [Suspect]
     Active Substance: ASPARAGINASE
     Dosage: 5400 IU, UNK
     Route: 042
     Dates: start: 20160630
  4. VINCRISTINE [Suspect]
     Active Substance: VINCRISTINE
     Indication: PHILADELPHIA CHROMOSOME POSITIVE
     Dosage: 0.8 MG, SINGLE
     Route: 042
     Dates: start: 20151223, end: 20151223
  5. VINCRISTINE [Suspect]
     Active Substance: VINCRISTINE
     Dosage: 0.8 MG, SINGLE
     Route: 042
     Dates: start: 20160712, end: 20160712
  6. CYCLOPHOSPHAMIDE. [Suspect]
     Active Substance: CYCLOPHOSPHAMIDE
     Dosage: 570 MG, UNK
     Route: 042
     Dates: start: 20160730, end: 20160730
  7. ETOPOSIDE. [Suspect]
     Active Substance: ETOPOSIDE
     Indication: PHILADELPHIA CHROMOSOME POSITIVE
  8. IFOSFAMIDE. [Suspect]
     Active Substance: IFOSFAMIDE
     Indication: PHILADELPHIA CHROMOSOME POSITIVE
     Dosage: UNK
  9. CYTARABINE. [Suspect]
     Active Substance: CYTARABINE
     Indication: ACUTE LYMPHOCYTIC LEUKAEMIA
     Dosage: 41 MG, QD
     Route: 042
     Dates: start: 20151019, end: 20151222
  10. CYTARABINE. [Suspect]
     Active Substance: CYTARABINE
     Dosage: 1080 MG, BID
     Route: 042
     Dates: start: 20151221
  11. CYTARABINE. [Suspect]
     Active Substance: CYTARABINE
     Dosage: 42 MG, UNK
     Route: 042
  12. VINCRISTINE [Suspect]
     Active Substance: VINCRISTINE
     Dosage: 1.6 MG, UNK
     Route: 042
     Dates: start: 20160119, end: 20160119
  13. VINDESINE [Suspect]
     Active Substance: VINDESINE
     Indication: ACUTE LYMPHOCYTIC LEUKAEMIA
     Dosage: 1.6 MG, UNK
     Route: 042
     Dates: start: 20160114
  14. ASPARAGINASE [Suspect]
     Active Substance: ASPARAGINASE
     Dosage: 5400 IU, UNK
     Route: 042
     Dates: start: 20160310
  15. CYTARABINE. [Suspect]
     Active Substance: CYTARABINE
     Indication: PHILADELPHIA CHROMOSOME POSITIVE
     Dosage: 41 MG, QD
     Route: 042
     Dates: start: 20151026, end: 20151029
  16. CYTARABINE. [Suspect]
     Active Substance: CYTARABINE
     Dosage: UNKNOWN
     Dates: start: 20160811
  17. VINCRISTINE [Suspect]
     Active Substance: VINCRISTINE
     Indication: ACUTE LYMPHOCYTIC LEUKAEMIA
     Dosage: 0.8 MG, SINGLE
     Route: 042
     Dates: start: 20151218
  18. VINCRISTINE [Suspect]
     Active Substance: VINCRISTINE
     Dosage: 0.8 MG, SINGLE
     Route: 042
     Dates: start: 20160317
  19. IMATINIB [Suspect]
     Active Substance: IMATINIB
     Dosage: UNK
  20. DOXORUBICIN [Suspect]
     Active Substance: DOXORUBICIN
     Indication: ACUTE LYMPHOCYTIC LEUKAEMIA
     Dosage: 13.5 MG, UNK
     Route: 042
     Dates: start: 20160303
  21. DOXORUBICIN [Suspect]
     Active Substance: DOXORUBICIN
     Dosage: 13.5 MG, UNK
     Route: 042
     Dates: start: 20160712
  22. CYCLOPHOSPHAMIDE. [Suspect]
     Active Substance: CYCLOPHOSPHAMIDE
     Indication: PHILADELPHIA CHROMOSOME POSITIVE
     Dosage: 550 MG, QD
     Route: 042
     Dates: start: 20151017, end: 20151017
  23. ETOPOSIDE. [Suspect]
     Active Substance: ETOPOSIDE
     Indication: ACUTE LYMPHOCYTIC LEUKAEMIA
     Dosage: 52 MG, UNK (5 APPLICATIONS TO 52 MG)
     Route: 042
     Dates: start: 20160206, end: 20160208
  24. ASPARAGINASE [Suspect]
     Active Substance: ASPARAGINASE
     Dosage: 5400 IU, UNK
     Route: 042
     Dates: start: 20160306
  25. ASPARAGINASE [Suspect]
     Active Substance: ASPARAGINASE
     Dosage: 5400 IU, UNK
     Route: 042
     Dates: start: 20160627
  26. CYTARABINE. [Suspect]
     Active Substance: CYTARABINE
     Dosage: 41 MG, QD
     Route: 042
     Dates: start: 20151102, end: 20151105
  27. VINCRISTINE [Suspect]
     Active Substance: VINCRISTINE
     Dosage: 0.8 MG, SINGLE
     Route: 042
     Dates: start: 20160310
  28. VINCRISTINE [Suspect]
     Active Substance: VINCRISTINE
     Dosage: 0.8 MG, SINGLE
     Route: 042
     Dates: start: 20160627
  29. DOXORUBICIN [Suspect]
     Active Substance: DOXORUBICIN
     Dosage: 13.5 MG, UNK
     Route: 042
     Dates: start: 20160704
  30. CYCLOPHOSPHAMIDE. [Suspect]
     Active Substance: CYCLOPHOSPHAMIDE
     Indication: ACUTE LYMPHOCYTIC LEUKAEMIA
     Dosage: 550 MG, QD
     Route: 042
     Dates: start: 20151203, end: 20151203
  31. CYCLOPHOSPHAMIDE. [Suspect]
     Active Substance: CYCLOPHOSPHAMIDE
     Dosage: 110 MG, UNK (5 APPLICATIONS TO 110 MG)
     Route: 042
     Dates: start: 20151219, end: 20151221
  32. METHOTREXATE. [Suspect]
     Active Substance: METHOTREXATE
     Indication: ACUTE LYMPHOCYTIC LEUKAEMIA
     Dosage: 2700 MG, QD
     Route: 042
     Dates: start: 20151218, end: 20151219
  33. METHOTREXATE. [Suspect]
     Active Substance: METHOTREXATE
     Dosage: REGULARY APPLICATION VIA THERAPY ELEMENT HR3
     Route: 037
     Dates: start: 20160208
  34. MERCAPTOPURINE. [Suspect]
     Active Substance: MERCAPTOPURINE
     Indication: PRODUCT USED FOR UNKNOWN INDICATION
     Dosage: UNK
     Route: 048
     Dates: start: 20160913
  35. ASPARAGINASE [Suspect]
     Active Substance: ASPARAGINASE
     Dosage: 5400 IU, UNK
     Route: 042
     Dates: start: 20160313
  36. CYTARABINE. [Suspect]
     Active Substance: CYTARABINE
     Dosage: 2160 MG, QD
     Route: 042
     Dates: start: 20151221
  37. VINCRISTINE [Suspect]
     Active Substance: VINCRISTINE
     Dosage: 0.8 MG, SINGLE
     Route: 042
     Dates: start: 20160324
  38. IMATINIB [Suspect]
     Active Substance: IMATINIB
     Indication: PRODUCT USED FOR UNKNOWN INDICATION
     Dosage: 150 MG, QD
     Route: 048
     Dates: start: 20150921, end: 20170307
  39. DOXORUBICIN [Suspect]
     Active Substance: DOXORUBICIN
     Dosage: 13.5 MG, UNK
     Route: 042
     Dates: start: 20160620
  40. DOXORUBICIN [Suspect]
     Active Substance: DOXORUBICIN
     Dosage: 13.5 MG, UNK
     Route: 042
  41. VINCRISTINE [Suspect]
     Active Substance: VINCRISTINE
     Dosage: 1.6 MG, UNK
     Route: 042
     Dates: start: 20160114
  42. VINCRISTINE [Suspect]
     Active Substance: VINCRISTINE
     Dosage: 0.8 MG, SINGLE
     Route: 042
     Dates: start: 20160704
  43. METHOTREXATE. [Suspect]
     Active Substance: METHOTREXATE
     Dosage: UNKNOWN
     Route: 048
     Dates: start: 20160913
  44. CYTARABINE. [Suspect]
     Active Substance: CYTARABINE
     Dosage: 41 MG, QD
     Route: 042
     Dates: start: 20151109, end: 20151112
  45. CYTARABINE. [Suspect]
     Active Substance: CYTARABINE
     Dosage: 1040 MG, UNK (4 APPLICATIONS TO 1040 MG)
     Route: 042
     Dates: start: 20160204, end: 20160206
  46. VINCRISTINE [Suspect]
     Active Substance: VINCRISTINE
     Dosage: 0.8 MG, SINGLE
     Route: 042
     Dates: start: 20160303, end: 20160303
  47. GLIVEC [Suspect]
     Active Substance: IMATINIB MESYLATE
     Indication: ACUTE LYMPHOCYTIC LEUKAEMIA
     Dosage: 7650 MG, UNK
  48. GLIVEC [Suspect]
     Active Substance: IMATINIB MESYLATE
     Dosage: 150 MG, QD
     Route: 048
     Dates: start: 20150921, end: 20170307
  49. DOXORUBICIN [Suspect]
     Active Substance: DOXORUBICIN
     Indication: PHILADELPHIA CHROMOSOME POSITIVE
     Dosage: 13.5 MG, UNK
     Route: 042
     Dates: start: 20160310
  50. IFOSFAMIDE. [Suspect]
     Active Substance: IFOSFAMIDE
     Indication: ACUTE LYMPHOCYTIC LEUKAEMIA
     Dosage: 416 MG, QD
     Route: 042
     Dates: start: 20160115, end: 20160117
  51. METHOTREXATE. [Suspect]
     Active Substance: METHOTREXATE
     Indication: PHILADELPHIA CHROMOSOME POSITIVE
     Dosage: 2600 MG, QD (1 APPLICATION ABOUT 24 HOURS)
     Route: 042
     Dates: start: 20160114, end: 20160115
  52. DAUNORUBICIN [Suspect]
     Active Substance: DAUNORUBICIN
     Indication: PHILADELPHIA CHROMOSOME POSITIVE
     Dosage: UNK
  53. ASPARAGINASE [Suspect]
     Active Substance: ASPARAGINASE
     Indication: ACUTE LYMPHOCYTIC LEUKAEMIA
     Dosage: 13500 IU, QD
     Route: 042
     Dates: start: 20151223, end: 20151223
  54. ASPARAGINASE [Suspect]
     Active Substance: ASPARAGINASE
     Dosage: 5400 IU, UNK
     Route: 042
     Dates: start: 20160620
  55. ASPARAGINASE [Suspect]
     Active Substance: ASPARAGINASE
     Dosage: 5400 IU, UNK
     Route: 042
  56. CYTARABINE. [Suspect]
     Active Substance: CYTARABINE
     Dosage: UNKNOWN
     Route: 037
     Dates: start: 20160208, end: 20160208
  57. VINCRISTINE [Suspect]
     Active Substance: VINCRISTINE
     Dosage: 0.8 MG, SINGLE
     Route: 042
     Dates: start: 20160620
  58. GLIVEC [Suspect]
     Active Substance: IMATINIB MESYLATE
     Indication: PHILADELPHIA CHROMOSOME POSITIVE
     Dosage: 21000 MG, UNK
  59. GLIVEC [Suspect]
     Active Substance: IMATINIB MESYLATE
     Indication: SYSTEMIC SCLERODERMA
     Dosage: UNK
  60. DOXORUBICIN [Suspect]
     Active Substance: DOXORUBICIN
     Dosage: 13.5 MG, UNK
     Route: 042
     Dates: start: 20160324
  61. DOXORUBICIN [Suspect]
     Active Substance: DOXORUBICIN
     Dosage: 13.5 MG, UNK
     Route: 042
     Dates: start: 20160627
  62. CYCLOPHOSPHAMIDE. [Suspect]
     Active Substance: CYCLOPHOSPHAMIDE
     Dosage: 560 MG, UNK
     Route: 042
     Dates: start: 20160416, end: 20160416
  63. DAUNORUBICIN [Suspect]
     Active Substance: DAUNORUBICIN
     Indication: ACUTE LYMPHOCYTIC LEUKAEMIA
     Dosage: 16 MG, QD
     Route: 042
     Dates: start: 20160118, end: 20160119
  64. DAUNORUBICIN [Suspect]
     Active Substance: DAUNORUBICIN
     Dosage: 13.5 MG, UNK
     Route: 042
     Dates: start: 20160324
  65. VINDESINE [Suspect]
     Active Substance: VINDESINE
     Indication: PHILADELPHIA CHROMOSOME POSITIVE
     Dosage: 1.6 MG, UNK
     Route: 042
     Dates: start: 20160119, end: 20160119

REACTIONS (12)
  - Pyrexia [Recovered/Resolved]
  - Febrile neutropenia [Recovered/Resolved]
  - Hypoxia [Unknown]
  - Urinary tract infection [Unknown]
  - Muscular weakness [Unknown]
  - Infectious colitis [Unknown]
  - Lymphopenia [Unknown]
  - Stomatitis [Unknown]
  - Pruritus [Unknown]
  - Upper respiratory tract infection [Recovered/Resolved]
  - Constipation [Unknown]
  - Neutropenia [Recovered/Resolved]

NARRATIVE: CASE EVENT DATE: 20151110
